FAERS Safety Report 11382263 (Version 1)
Quarter: 2015Q3

REPORT INFORMATION
  Report Type: Spontaneous
  Country: US (occurrence: US)
  Receive Date: 20150811
  Receipt Date: 20150811
  Transmission Date: 20151125
  Serious: No
  Sender: FDA-Public Use
  Company Number: US-ELI_LILLY_AND_COMPANY-US201001004155

PATIENT
  Age: 74 Year
  Sex: Male

DRUGS (2)
  1. CIALIS [Suspect]
     Active Substance: TADALAFIL
     Dosage: 10 MG, AS NEEDED
  2. CIALIS [Suspect]
     Active Substance: TADALAFIL
     Indication: ERECTILE DYSFUNCTION
     Dosage: 20 MG, AS NEEDED
     Route: 065
     Dates: start: 20091118, end: 20100104

REACTIONS (7)
  - Headache [Unknown]
  - Neck pain [Unknown]
  - Back pain [Unknown]
  - Pain in extremity [Unknown]
  - Chest pain [Unknown]
  - Nasopharyngitis [Unknown]
  - Intentional product misuse [Recovered/Resolved]

NARRATIVE: CASE EVENT DATE: 20091118
